FAERS Safety Report 4575102-X (Version None)
Quarter: 2005Q1

REPORT INFORMATION
  Report Type: 
  Country: None (occurrence: None)
  Receive Date: 20050208
  Receipt Date: 20050128
  Transmission Date: 20050727
  Serious: Yes (Other)
  Sender: FDA-Public Use
  Company Number: AU-GLAXOSMITHKLINE-B0370106A

PATIENT
  Age: 35 Year
  Sex: Female
  Weight: 80 kg

DRUGS (2)
  1. IMIGRAN [Suspect]
     Indication: ILL-DEFINED DISORDER
     Dosage: 1U SINGLE DOSE
     Route: 048
     Dates: start: 19920826
  2. SANDOMIGRAN [Concomitant]
     Indication: ILL-DEFINED DISORDER
     Route: 065

REACTIONS (2)
  - ANGIONEUROTIC OEDEMA [None]
  - PHARYNGITIS [None]
